FAERS Safety Report 9596980 (Version 2)
Quarter: 2013Q4

REPORT INFORMATION
  Report Type: Spontaneous
  Country: US (occurrence: US)
  Receive Date: 20131004
  Receipt Date: 20131106
  Transmission Date: 20140711
  Serious: Yes (Other)
  Sender: FDA-Public Use
  Company Number: CHPA2013US015000

PATIENT
  Age: 60 Year
  Sex: Female

DRUGS (2)
  1. 4 WAY FAST ACTING NASAL SPRAY [Suspect]
     Indication: OFF LABEL USE
     Dosage: 1 TO 2 DF, 6 TO 7 TIMES QD
     Route: 045
  2. 4 WAY FAST ACTING NASAL SPRAY [Suspect]
     Indication: POST PROCEDURAL DISCOMFORT

REACTIONS (5)
  - Hyperthyroidism [Not Recovered/Not Resolved]
  - Nasal septum deviation [Recovered/Resolved]
  - Incorrect drug administration duration [Unknown]
  - Therapeutic response unexpected [Unknown]
  - Incorrect dose administered [Unknown]
